FAERS Safety Report 19766671 (Version 2)
Quarter: 2021Q3

REPORT INFORMATION
  Report Type: Report from Study
  Country: US (occurrence: US)
  Receive Date: 20210830
  Receipt Date: 20210910
  Transmission Date: 20211014
  Serious: Yes (Death)
  Sender: FDA-Public Use
  Company Number: US-PARATEK PHARMACEUTICALS, INC.-2021PTK00150

PATIENT
  Age: 49 Year
  Sex: Female

DRUGS (2)
  1. NUZYRA [Suspect]
     Active Substance: OMADACYCLINE
     Indication: SUBCUTANEOUS ABSCESS
     Dosage: 300 MG, 1X/DAY
     Route: 048
     Dates: start: 20190817
  2. NUZYRA [Suspect]
     Active Substance: OMADACYCLINE
     Indication: CELLULITIS

REACTIONS (2)
  - Death [Fatal]
  - Incorrect dose administered [Recovered/Resolved]

NARRATIVE: CASE EVENT DATE: 20190817
